FAERS Safety Report 24075535 (Version 1)
Quarter: 2024Q3

REPORT INFORMATION
  Report Type: Spontaneous
  Country: US (occurrence: US)
  Receive Date: 20240710
  Receipt Date: 20240710
  Transmission Date: 20241016
  Serious: Yes (Hospitalization)
  Sender: JOHNSON AND JOHNSON
  Company Number: US-JNJFOC-20240712947

PATIENT
  Age: 66 Year
  Sex: Female

DRUGS (3)
  1. PHENYLEPHRINE HYDROCHLORIDE [Suspect]
     Active Substance: COCOA BUTTER\PHENYLEPHRINE HYDROCHLORIDE\SHARK LIVER OIL
     Indication: Product used for unknown indication
     Route: 065
  2. NOREPINEPHRINE [Suspect]
     Active Substance: NOREPINEPHRINE\NOREPINEPHRINE BITARTRATE
     Indication: Product used for unknown indication
     Route: 065
  3. VASOPRESSIN [Suspect]
     Active Substance: VASOPRESSIN
     Indication: Product used for unknown indication
     Route: 065

REACTIONS (1)
  - Shock [Recovered/Resolved]
